FAERS Safety Report 7030579-5 (Version None)
Quarter: 2010Q4

REPORT INFORMATION
  Report Type: 
  Country: None (occurrence: None)
  Receive Date: 20101004
  Receipt Date: 20100922
  Transmission Date: 20110411
  Serious: Yes (Other)
  Sender: FDA-Public Use
  Company Number: 1000016417

PATIENT
  Age: 66 Year
  Sex: Male
  Weight: 78 kg

DRUGS (6)
  1. CITALOPRAM HYDROBROMIDE [Suspect]
     Indication: ANXIETY
     Dosage: 20 MG (20 MG, ONCE), ORAL
     Route: 048
     Dates: start: 20100911, end: 20100911
  2. CITALOPRAM HYDROBROMIDE [Suspect]
     Indication: DEPRESSION
     Dosage: 20 MG (20 MG, ONCE), ORAL
     Route: 048
     Dates: start: 20100911, end: 20100911
  3. BENDROFLUMETHIZIDE (BENDROFLUMETHIZIDE) (BENDROFLUMETHIZIDE) [Concomitant]
  4. BUPRENORPHINE (BUPRENORPHINE) (BUPRENORPHINE) [Concomitant]
  5. FELODIPINE (FELODIPINE) (FELODIPINE) [Concomitant]
  6. RILUZOLE (RILUZOLE) (RILUZOLE) [Concomitant]

REACTIONS (5)
  - ASTHENIA [None]
  - DIZZINESS [None]
  - HYPERHIDROSIS [None]
  - MALAISE [None]
  - NAUSEA [None]
